FAERS Safety Report 18633023 (Version 1)
Quarter: 2020Q4

REPORT INFORMATION
  Report Type: Spontaneous
  Country: JP (occurrence: JP)
  Receive Date: 20201218
  Receipt Date: 20201218
  Transmission Date: 20210114
  Serious: Yes (Other)
  Sender: FDA-Public Use
  Company Number: JP-ASTRAZENECA-2020SF67409

PATIENT
  Age: 79 Year
  Sex: Male

DRUGS (3)
  1. IMFINZI [Suspect]
     Active Substance: DURVALUMAB
     Indication: SMALL CELL LUNG CANCER
     Route: 041
     Dates: start: 20201117
  2. CARBOPLATIN. [Concomitant]
     Active Substance: CARBOPLATIN
     Indication: SMALL CELL LUNG CANCER
     Dosage: AUC 5, EVERY THREE WEEKS
     Route: 065
     Dates: start: 20201117
  3. ETOPOSIDE. [Concomitant]
     Active Substance: ETOPOSIDE
     Indication: SMALL CELL LUNG CANCER
     Dosage: 100 MG/M2, ON DAY 1, 2 AND 3 OF EACH COURSE
     Route: 065
     Dates: start: 20201117

REACTIONS (9)
  - Hyponatraemia [Unknown]
  - Decreased appetite [Unknown]
  - Alanine aminotransferase increased [Unknown]
  - C-reactive protein increased [Unknown]
  - Pyrexia [Recovered/Resolved]
  - Aspartate aminotransferase increased [Unknown]
  - Anaemia [Unknown]
  - Neutrophil count decreased [Unknown]
  - Malaise [Unknown]

NARRATIVE: CASE EVENT DATE: 20201121
